FAERS Safety Report 23235138 (Version 1)
Quarter: 2023Q4

REPORT INFORMATION
  Report Type: Spontaneous
  Country: US (occurrence: US)
  Receive Date: 20231128
  Receipt Date: 20231128
  Transmission Date: 20240110
  Serious: No
  Sender: FDA-Public Use
  Company Number: US-PFIZER INC-202300409579

PATIENT
  Age: 87 Year
  Sex: Female
  Weight: 79.38 kg

DRUGS (2)
  1. PAXLOVID [Suspect]
     Active Substance: NIRMATRELVIR\RITONAVIR
     Indication: COVID-19 treatment
     Dosage: [NIRMATRELVIR 300 MG]/[RITONAVIR 100 MG]; 2X/DAY
     Dates: start: 20231119, end: 20231122
  2. THYROXINE [Concomitant]
     Active Substance: LEVOTHYROXINE
     Indication: Hypothyroidism
     Dosage: 50 UG, DAILY (50MCG A DAY BY MOUTH)
     Route: 048

REACTIONS (8)
  - Dysgeusia [Recovering/Resolving]
  - Head discomfort [Recovered/Resolved]
  - Photopsia [Recovered/Resolved]
  - Tinnitus [Recovered/Resolved]
  - Dental paraesthesia [Not Recovered/Not Resolved]
  - Abdominal discomfort [Recovering/Resolving]
  - Diarrhoea [Recovered/Resolved]
  - Faeces discoloured [Recovered/Resolved]

NARRATIVE: CASE EVENT DATE: 20231101
